FAERS Safety Report 12632524 (Version 5)
Quarter: 2016Q3

REPORT INFORMATION
  Report Type: Report from Study
  Country: CA (occurrence: CA)
  Receive Date: 20160808
  Receipt Date: 20160928
  Transmission Date: 20161109
  Serious: Yes (Hospitalization)
  Sender: FDA-Public Use
  Company Number: PHHY2016CA075564

PATIENT
  Age: 69 Year
  Sex: Male

DRUGS (3)
  1. SANDOSTATIN [Suspect]
     Active Substance: OCTREOTIDE ACETATE
     Indication: CARCINOID TUMOUR
     Dosage: 200 UG, TID X 14 DAYS
     Route: 058
     Dates: start: 20160520, end: 201606
  2. SANDOSTATIN LAR DEPOT [Suspect]
     Active Substance: OCTREOTIDE ACETATE
     Indication: CARCINOID TUMOUR
     Dosage: 60 MG, QMO (EVERY 4 WEEKS)
     Route: 030
     Dates: start: 20160520, end: 20160909
  3. SANDOSTATIN LAR DEPOT [Suspect]
     Active Substance: OCTREOTIDE ACETATE
     Dosage: 60 MG, UNK (EVERY 2 WEEKS)
     Route: 030
     Dates: start: 20160729

REACTIONS (17)
  - Asthenia [Unknown]
  - Inappropriate schedule of drug administration [Unknown]
  - Weight decreased [Unknown]
  - Impatience [Unknown]
  - Fatigue [Unknown]
  - Musculoskeletal disorder [Unknown]
  - Anxiety [Unknown]
  - Peripheral swelling [Unknown]
  - Blood pressure systolic increased [Unknown]
  - Dyspnoea [Unknown]
  - Movement disorder [Unknown]
  - Eating disorder [Unknown]
  - Feeling abnormal [Unknown]
  - Furuncle [Unknown]
  - Muscle atrophy [Unknown]
  - Needle issue [Unknown]
  - Injection site pain [Unknown]

NARRATIVE: CASE EVENT DATE: 20160712
